FAERS Safety Report 7039513-5 (Version None)
Quarter: 2010Q4

REPORT INFORMATION
  Report Type: 
  Country: None (occurrence: None)
  Receive Date: 20101012
  Receipt Date: 20101006
  Transmission Date: 20110411
  Serious: Yes (Death)
  Sender: FDA-Public Use
  Company Number: US-GILEAD-2010-0032168

PATIENT
  Sex: Male
  Weight: 65.83 kg

DRUGS (16)
  1. LETAIRIS [Suspect]
     Indication: PULMONARY ARTERIAL HYPERTENSION
     Route: 048
     Dates: start: 20090302
  2. FLOLAN [Concomitant]
  3. REVATIO [Concomitant]
  4. OXYGEN [Concomitant]
  5. ALDACTONE [Concomitant]
  6. FUROSEMIDE [Concomitant]
  7. METOLAZONE [Concomitant]
  8. BUMEX [Concomitant]
  9. DIGOXIN [Concomitant]
  10. JANUMET [Concomitant]
  11. LEXAPRO [Concomitant]
  12. RESTORIL [Concomitant]
  13. LOTEMAX [Concomitant]
  14. KLOR-CON [Concomitant]
  15. IRON [Concomitant]
  16. MULTI-VITAMIN [Concomitant]

REACTIONS (1)
  - RENAL FAILURE [None]
